FAERS Safety Report 7647838-5 (Version None)
Quarter: 2011Q3

REPORT INFORMATION
  Report Type: 
  Country: None (occurrence: None)
  Receive Date: 20110801
  Receipt Date: 20110726
  Transmission Date: 20111222
  Serious: Yes (Death)
  Sender: FDA-Public Use
  Company Number: US-CELGENEUS-163-21880-11073156

PATIENT
  Sex: Male

DRUGS (9)
  1. REVLIMID [Suspect]
     Indication: MULTIPLE MYELOMA
     Dosage: 25 MILLIGRAM
     Route: 048
     Dates: start: 20091127, end: 20100303
  2. PROMETHAZINE [Concomitant]
     Dosage: 25 MILLIGRAM
     Route: 065
  3. DEXAMETHASONE [Concomitant]
     Dosage: 4 MILLIGRAM
     Route: 065
  4. NEXIUM [Concomitant]
     Dosage: 40 MILLIGRAM
     Route: 065
  5. ONDANSETRON [Concomitant]
     Dosage: 8 MILLIGRAM
     Route: 065
  6. TYLENOL PM EXTRA STRENGHT [Concomitant]
     Route: 065
  7. FELODIPINE [Concomitant]
     Dosage: 10 MILLIGRAM
     Route: 065
  8. METOPROLOL TARTRATE [Concomitant]
     Dosage: 25 MILLIGRAM
     Route: 065
  9. OXY-APAP [Concomitant]
     Dosage: 325/5
     Route: 065

REACTIONS (1)
  - DEATH [None]
